FAERS Safety Report 13291846 (Version 1)
Quarter: 2017Q1

REPORT INFORMATION
  Report Type: Spontaneous
  Country: US (occurrence: US)
  Receive Date: 20170302
  Receipt Date: 20170302
  Transmission Date: 20170428
  Serious: Yes (Other)
  Sender: FDA-Public Use
  Company Number: None

PATIENT
  Age: 80 Year
  Sex: Female

DRUGS (2)
  1. CATRUDA [Concomitant]
  2. PROLIA [Suspect]
     Active Substance: DENOSUMAB
     Indication: OSTEOPOROSIS
     Dosage: 60 MG EVERY SIX MONTHS UNDER THE SKIN
     Route: 058
     Dates: start: 20160929

REACTIONS (1)
  - Squamous cell carcinoma of lung [None]

NARRATIVE: CASE EVENT DATE: 201610
